FAERS Safety Report 18936927 (Version 4)
Quarter: 2022Q1

REPORT INFORMATION
  Report Type: Spontaneous
  Country: IT (occurrence: None)
  Receive Date: 20210225
  Receipt Date: 20220228
  Transmission Date: 20220423
  Serious: Yes (Hospitalization, Other)
  Sender: FDA-Public Use
  Company Number: IT-ROCHE-2769605

PATIENT
  Age: 65 Year
  Sex: Male
  Weight: 90 kg

DRUGS (2)
  1. OBINUTUZUMAB [Suspect]
     Active Substance: OBINUTUZUMAB
     Indication: Non-Hodgkin^s lymphoma
     Route: 042
  2. ENOXAPARIN SODIUM [Concomitant]
     Active Substance: ENOXAPARIN SODIUM
     Route: 058
     Dates: start: 20210210

REACTIONS (7)
  - COVID-19 pneumonia [Unknown]
  - Streptococcal sepsis [Unknown]
  - Interstitial lung disease [Unknown]
  - Staphylococcal bacteraemia [Unknown]
  - COVID-19 [Unknown]
  - Off label use [Unknown]
  - Pyrexia [Unknown]

NARRATIVE: CASE EVENT DATE: 20201104
